FAERS Safety Report 7717704-5 (Version None)
Quarter: 2011Q3

REPORT INFORMATION
  Report Type: 
  Country: None (occurrence: None)
  Receive Date: 20110824
  Receipt Date: 20110809
  Transmission Date: 20111222
  Serious: Yes (Hospitalization, Other)
  Sender: FDA-Public Use
  Company Number: 2011MA001734

PATIENT
  Sex: Male
  Weight: 98.8842 kg

DRUGS (25)
  1. PHENERGAN HCL [Concomitant]
  2. ATIVAN [Concomitant]
  3. NUVIGIL [Concomitant]
  4. PROTONIX [Concomitant]
  5. CARAFATE [Concomitant]
  6. PERCOCET [Concomitant]
  7. METOPROLOL [Concomitant]
  8. ADVAIR DISKUS 100/50 [Concomitant]
  9. PREVACID [Concomitant]
  10. LUNESTA [Concomitant]
  11. LASIX [Concomitant]
  12. ZYLOPRIM [Concomitant]
  13. PROAIR HFA [Concomitant]
  14. FLOMAX [Concomitant]
  15. CORTISONE CREAM [Concomitant]
  16. PROVIGIL [Concomitant]
  17. ALLEGRA D 24 HOUR [Concomitant]
  18. BUSPAR [Concomitant]
  19. PREDNISONE [Concomitant]
  20. ZEGERID [Concomitant]
  21. OMEPRAZOLE [Concomitant]
  22. METOCLOPRAMIDE [Suspect]
     Dosage: 10 MG;QID;PO
     Route: 048
     Dates: start: 20031101, end: 20100701
  23. CARDIZEM [Concomitant]
  24. AVELOX [Concomitant]
  25. ADIPEX [Concomitant]

REACTIONS (49)
  - TREMOR [None]
  - ESSENTIAL TREMOR [None]
  - DYSPLASIA [None]
  - NAUSEA [None]
  - INSOMNIA [None]
  - PROSTATIC DISORDER [None]
  - SINUS ARRHYTHMIA [None]
  - SUPRAVENTRICULAR EXTRASYSTOLES [None]
  - ARTERIOSCLEROSIS [None]
  - EMOTIONAL DISORDER [None]
  - RENAL CANCER [None]
  - MITRAL VALVE INCOMPETENCE [None]
  - SLEEP APNOEA SYNDROME [None]
  - EXTRAPYRAMIDAL DISORDER [None]
  - DUODENAL POLYP [None]
  - DUODENITIS [None]
  - VOMITING [None]
  - PANCREATITIS [None]
  - HAEMANGIOMA OF LIVER [None]
  - ECONOMIC PROBLEM [None]
  - ABSCESS [None]
  - INCISION SITE COMPLICATION [None]
  - IMPLANT SITE RASH [None]
  - WOUND DEHISCENCE [None]
  - RASH [None]
  - FLATULENCE [None]
  - ABDOMINAL PAIN [None]
  - URINARY RETENTION [None]
  - PURULENCE [None]
  - ABDOMINAL DISTENSION [None]
  - TRICUSPID VALVE INCOMPETENCE [None]
  - DIASTOLIC DYSFUNCTION [None]
  - FLUID INTAKE REDUCED [None]
  - TARDIVE DYSKINESIA [None]
  - RESTLESS LEGS SYNDROME [None]
  - WHITE BLOOD CELL COUNT INCREASED [None]
  - ADENOMA BENIGN [None]
  - MUSCLE SPASMS [None]
  - DYSPNOEA [None]
  - HYPERTENSIVE HEART DISEASE [None]
  - LEFT VENTRICULAR HYPERTROPHY [None]
  - OBESITY [None]
  - SKIN LESION [None]
  - ABDOMINAL PAIN UPPER [None]
  - DIARRHOEA [None]
  - CHEST PAIN [None]
  - RENAL CELL CARCINOMA [None]
  - DILATATION ATRIAL [None]
  - PALPITATIONS [None]
